FAERS Safety Report 20173369 (Version 2)
Quarter: 2021Q4

REPORT INFORMATION
  Report Type: Spontaneous
  Country: US (occurrence: US)
  Receive Date: 20211211
  Receipt Date: 20211231
  Transmission Date: 20220304
  Serious: Yes (Death, Hospitalization)
  Sender: FDA-Public Use
  Company Number: US-TEVA-2021-US-1985857

PATIENT
  Age: 80 Year
  Sex: Female
  Weight: 46.3 kg

DRUGS (10)
  1. AUSTEDO [Suspect]
     Active Substance: DEUTETRABENAZINE
     Indication: Tardive dyskinesia
     Dosage: 18MG IN THE MORNING AND 9MG IN THE EVENING
     Route: 065
     Dates: start: 20190930
  2. AUSTEDO [Suspect]
     Active Substance: DEUTETRABENAZINE
     Dosage: 18 MILLIGRAM DAILY; TAKE 2 TABLETS Q QM AND 1 TABLET Q EVENING
     Route: 065
  3. SYMMETREL [Concomitant]
     Active Substance: AMANTADINE HYDROCHLORIDE
     Dosage: 200 MILLIGRAM DAILY; TAKE BY MOUTH TWO TIMES DAILY
     Route: 048
  4. BUSPAR [Concomitant]
     Active Substance: BUSPIRONE HYDROCHLORIDE
     Dosage: 30 MILLIGRAM DAILY; TAKE BY MOUTH 3 TIMES DAILY
     Route: 048
  5. VITAMIN D3 [Concomitant]
     Active Substance: CHOLECALCIFEROL
     Dosage: 1000 UNITS TAKE BY MOUTH DAILY
     Route: 048
  6. VITAMIN B12 [Concomitant]
     Active Substance: CYANOCOBALAMIN
     Dosage: 100 MICROGRAM DAILY; TAKE BY MOUTH DAILY
     Route: 048
  7. PROZAC [Concomitant]
     Active Substance: FLUOXETINE HYDROCHLORIDE
     Dosage: 20 MICROGRAM DAILY; 1 CAPSULE BY MOUTH EVERY MORNING
     Route: 048
  8. ATARAX [Concomitant]
     Active Substance: HYDROXYZINE HYDROCHLORIDE
     Indication: Anxiety
     Route: 065
  9. ATARAX [Concomitant]
     Active Substance: HYDROXYZINE HYDROCHLORIDE
     Indication: Panic attack
  10. Influenza Hd [Concomitant]
     Dates: start: 20200903

REACTIONS (4)
  - Adverse event [Fatal]
  - Panic attack [Unknown]
  - Anxiety [Unknown]
  - Incorrect dose administered [Unknown]
